FAERS Safety Report 4507601-0 (Version None)
Quarter: 2004Q4

REPORT INFORMATION
  Report Type: 
  Country: None (occurrence: None)
  Receive Date: 20040928
  Receipt Date: 20040819
  Transmission Date: 20050328
  Serious: Yes (Hospitalization)
  Sender: FDA-Public Use
  Company Number: 04P-163-0271167-00

PATIENT
  Age: 62 Year
  Sex: Female

DRUGS (7)
  1. HUMIRA [Suspect]
     Indication: RHEUMATOID ARTHRITIS
     Dosage: 40 MG, 1 IN 1 WK, SUBCUTANEOUS
     Route: 058
     Dates: start: 20030326, end: 20031201
  2. METHADONE [Concomitant]
  3. GABAPENTIN [Concomitant]
  4. PAROXETINE HYDROCHLORIDE [Concomitant]
  5. ROFECOXIB [Concomitant]
  6. PREDNISONE [Concomitant]
  7. LEFLUNOMIDE [Concomitant]

REACTIONS (1)
  - ASTHMA [None]
